FAERS Safety Report 15957192 (Version 1)
Quarter: 2019Q1

REPORT INFORMATION
  Report Type: Spontaneous
  Country: FR (occurrence: FR)
  Receive Date: 20190213
  Receipt Date: 20190213
  Transmission Date: 20190417
  Serious: Yes (Other)
  Sender: FDA-Public Use
  Company Number: FR-TEVA-2019-FR-1009422

PATIENT
  Age: 45 Year
  Sex: Female

DRUGS (5)
  1. DEXERYL, CR?ME EN TUBE [Concomitant]
     Dosage: IN TUBE
  2. LEVOCARNIL [Concomitant]
     Active Substance: LEVOCARNITINE
  3. ATENOLOL. [Concomitant]
     Active Substance: ATENOLOL
  4. OMIX [Concomitant]
     Active Substance: TAMSULOSIN HYDROCHLORIDE
  5. COPAXONE [Suspect]
     Active Substance: GLATIRAMER ACETATE
     Indication: MULTIPLE SCLEROSIS
     Route: 058
     Dates: start: 201505

REACTIONS (1)
  - Blood thyroid stimulating hormone decreased [Recovered/Resolved]

NARRATIVE: CASE EVENT DATE: 20180614
